FAERS Safety Report 7574101-3 (Version None)
Quarter: 2011Q2

REPORT INFORMATION
  Report Type: 
  Country: None (occurrence: None)
  Receive Date: 20110627
  Receipt Date: 20110522
  Transmission Date: 20111010
  Serious: Yes (Other)
  Sender: FDA-Public Use
  Company Number: US-BAYER-2011-044869

PATIENT

DRUGS (1)
  1. ALEVE (CAPLET) [Suspect]
     Route: 048

REACTIONS (4)
  - CHAPPED LIPS [None]
  - HYPOAESTHESIA ORAL [None]
  - LIP SWELLING [None]
  - HYPERSENSITIVITY [None]
